FAERS Safety Report 4956769-0 (Version None)
Quarter: 2006Q1

REPORT INFORMATION
  Report Type: 
  Country: None (occurrence: None)
  Receive Date: 20060329
  Receipt Date: 20051219
  Transmission Date: 20060701
  Serious: Yes (Hospitalization)
  Sender: FDA-Public Use
  Company Number: DE-ROCHE-428966

PATIENT
  Age: 69 Year
  Sex: Male

DRUGS (2)
  1. MYCOPHENOLATE MOFETIL [Suspect]
     Route: 048
     Dates: start: 20050929
  2. TACROLIMUS [Suspect]
     Route: 048
     Dates: start: 20050929

REACTIONS (8)
  - CYTOMEGALOVIRUS INFECTION [None]
  - HYPERCALCAEMIA [None]
  - HYPERNATRAEMIA [None]
  - HYPERTENSION [None]
  - KIDNEY TRANSPLANT REJECTION [None]
  - RENAL HAEMATOMA [None]
  - URINARY TRACT INFECTION PSEUDOMONAL [None]
  - WOUND INFECTION [None]
